FAERS Safety Report 9474211 (Version 1)
Quarter: 2013Q3

REPORT INFORMATION
  Report Type: Spontaneous
  Country: US (occurrence: US)
  Receive Date: 20130823
  Receipt Date: 20130823
  Transmission Date: 20140515
  Serious: Yes (Other)
  Sender: FDA-Public Use
  Company Number: US-JNJFOC-20130807747

PATIENT
  Age: 69 Year
  Sex: Female
  Weight: 68.04 kg

DRUGS (7)
  1. RAZADYNE [Suspect]
     Indication: DEMENTIA ALZHEIMER^S TYPE
     Dosage: TWICE
     Route: 048
     Dates: start: 1999
  2. ELAVIL [Suspect]
     Indication: CONVULSION
     Route: 065
  3. SOMA [Concomitant]
     Indication: PAIN
     Route: 048
  4. LIBRAX [Concomitant]
     Indication: GASTRIC DISORDER
     Route: 048
  5. LEVSIN [Concomitant]
     Indication: DIARRHOEA
     Route: 048
  6. XANAX [Concomitant]
     Indication: RELAXATION THERAPY
     Route: 048
  7. ELAVIL [Concomitant]
     Indication: CONVULSION
     Route: 048
     Dates: start: 2013

REACTIONS (12)
  - Multiple sclerosis [Not Recovered/Not Resolved]
  - Parkinson^s disease [Not Recovered/Not Resolved]
  - Convulsion [Not Recovered/Not Resolved]
  - Drug dispensing error [Not Recovered/Not Resolved]
  - Incorrect dose administered [Not Recovered/Not Resolved]
  - Nervousness [Unknown]
  - Visual acuity reduced [Not Recovered/Not Resolved]
  - Weight decreased [Not Recovered/Not Resolved]
  - Wrong technique in drug usage process [Not Recovered/Not Resolved]
  - Drug dose omission [Not Recovered/Not Resolved]
  - Oropharyngeal pain [Not Recovered/Not Resolved]
  - Impaired driving ability [Not Recovered/Not Resolved]
